FAERS Safety Report 13012989 (Version 3)
Quarter: 2017Q2

REPORT INFORMATION
  Report Type: Spontaneous
  Country: US (occurrence: US)
  Receive Date: 20161209
  Receipt Date: 20170609
  Transmission Date: 20170830
  Serious: Yes (Other)
  Sender: FDA-Public Use
  Company Number: US-AMGEN-USASP2016171461

PATIENT
  Age: 19 Year
  Sex: Male
  Weight: 87.2 kg

DRUGS (3)
  1. BLINCYTO [Suspect]
     Active Substance: BLINATUMOMAB
     Dosage: 10 MUG, CONTINUING
     Route: 042
     Dates: start: 20161209
  2. KEPPRA [Concomitant]
     Active Substance: LEVETIRACETAM
  3. BLINCYTO [Suspect]
     Active Substance: BLINATUMOMAB
     Indication: ACUTE LYMPHOCYTIC LEUKAEMIA RECURRENT
     Dosage: 28 MUG, CONTINUING
     Route: 042
     Dates: start: 20161129, end: 20161201

REACTIONS (1)
  - Seizure [Unknown]

NARRATIVE: CASE EVENT DATE: 20161201
